FAERS Safety Report 6746553-X (Version None)
Quarter: 2010Q2

REPORT INFORMATION
  Report Type: 
  Country: None (occurrence: None)
  Receive Date: 20100528
  Receipt Date: 20100517
  Transmission Date: 20101027
  Serious: Yes (Hospitalization)
  Sender: FDA-Public Use
  Company Number: JP-ROCHE-704905

PATIENT
  Age: 68 Year
  Sex: Male

DRUGS (5)
  1. AVASTIN [Suspect]
     Indication: LARGE INTESTINE CARCINOMA
     Route: 041
     Dates: end: 20100427
  2. ELPLAT [Suspect]
     Indication: LARGE INTESTINE CARCINOMA
     Dosage: NOTE:DOSAGE IS UNCERTAIN
     Route: 041
  3. LEUCOVORIN CALCIUM [Concomitant]
     Dosage: NOTE: DOSAGE IS UNCERTAIN, DRUG:LEVOFOLINATE CALCIUM
     Route: 041
  4. FLUOROURACIL [Concomitant]
     Dosage: NOTE:DOSAGE IS UNCERTAIN
     Route: 041
  5. FLUOROURACIL [Concomitant]
     Dosage: NOTE: DOSAGE IS UNCERTAIN
     Route: 040

REACTIONS (4)
  - FACE OEDEMA [None]
  - LARYNGEAL OEDEMA [None]
  - PALATAL DISORDER [None]
  - PHOTOSENSITIVITY REACTION [None]
